FAERS Safety Report 18875289 (Version 1)
Quarter: 2021Q1

REPORT INFORMATION
  Report Type: Spontaneous
  Country: US (occurrence: US)
  Receive Date: 20210210
  Receipt Date: 20210210
  Transmission Date: 20210420
  Serious: No
  Sender: FDA-Public Use
  Company Number: US-TEVA-2021-US-1874943

PATIENT
  Sex: Male

DRUGS (1)
  1. CARTIA XT [Suspect]
     Active Substance: DILTIAZEM HYDROCHLORIDE
     Route: 065
     Dates: start: 2020

REACTIONS (3)
  - Pruritus [Unknown]
  - Blister [Unknown]
  - Allergic reaction to excipient [Unknown]

NARRATIVE: CASE EVENT DATE: 2020
